FAERS Safety Report 9824055 (Version 3)
Quarter: 2015Q3

REPORT INFORMATION
  Report Type: Spontaneous
  Country: US (occurrence: US)
  Receive Date: 20140116
  Receipt Date: 20150807
  Transmission Date: 20151125
  Serious: No
  Sender: FDA-Public Use
  Company Number: US-GILEAD-2011-0038451

PATIENT
  Age: 51 Year
  Sex: Female

DRUGS (2)
  1. TYVASO [Suspect]
     Active Substance: TREPROSTINIL
  2. LETAIRIS [Suspect]
     Active Substance: AMBRISENTAN
     Indication: PRODUCT USED FOR UNKNOWN INDICATION
     Route: 048
     Dates: start: 20070806

REACTIONS (7)
  - Respiratory tract irritation [Unknown]
  - Chest pain [Unknown]
  - Laryngeal pain [Unknown]
  - Dysphonia [Unknown]
  - Dry mouth [Unknown]
  - Throat irritation [Unknown]
  - Cough [Unknown]
